FAERS Safety Report 15493433 (Version 1)
Quarter: 2018Q4

REPORT INFORMATION
  Report Type: Spontaneous
  Country: FR (occurrence: FR)
  Receive Date: 20181012
  Receipt Date: 20181012
  Transmission Date: 20190205
  Serious: Yes (Hospitalization, Other)
  Sender: FDA-Public Use
  Company Number: FR-BRISTOL-MYERS SQUIBB COMPANY-BMS-2018-092619

PATIENT
  Age: 76 Year
  Sex: Female

DRUGS (18)
  1. ADIAZINE [Suspect]
     Active Substance: SULFADIAZINE
     Indication: PRODUCT USED FOR UNKNOWN INDICATION
     Dosage: DRUG STRUCTURE 1000 MG WITH A DRUG INTERVAL OF 1 DAY
     Route: 048
  2. BISOCE [Suspect]
     Active Substance: BISOPROLOL
     Indication: CARDIAC FAILURE
     Dosage: 1 DF= DRUG STRUCTURE ?1? (UNITS NOS) WITH A DRUG INTERVAL OF 1 DAY
     Route: 048
  3. RAMIPRIL. [Suspect]
     Active Substance: RAMIPRIL
     Indication: PRODUCT USED FOR UNKNOWN INDICATION
     Dosage: DRUG STRUCTURE 2.5 MG WITH A DRUG INTERVAL OF 1 DAY
     Route: 048
  4. KARDEGIC [Suspect]
     Active Substance: ASPIRIN DL-LYSINE
     Indication: PRODUCT USED FOR UNKNOWN INDICATION
     Dosage: DRUG STRUCTURE 75 MG WITH A DRUG INTERVAL OF 1 DAY
     Route: 048
  5. PHOSPHONEUROS [Suspect]
     Active Substance: CALCIUM PHOSPHATE, DIBASIC, ANHYDROUS\MAGNESIUM GLYCEROPHOSPHATE\PHOSPHORIC ACID\SODIUM PHOSPHATE, DIBASIC
     Indication: PRODUCT USED FOR UNKNOWN INDICATION
     Dosage: DRUG STRUCTURE 100 MG WITH A DRUG INTERVAL OF 1 DAY
     Route: 048
     Dates: end: 20160705
  6. NOVATREX (METHOTREXATE) [Suspect]
     Active Substance: METHOTREXATE SODIUM
     Indication: RHEUMATOID ARTHRITIS
     Dosage: DRUG STRUCTURE 10 MG WITH A DRUG INTERVAL OF 1 WEEK
     Route: 048
     Dates: end: 20160705
  7. MIRTAZAPINE. [Suspect]
     Active Substance: MIRTAZAPINE
     Indication: DEPRESSION
     Dosage: DRUG STRUCTURE 15 MG WITH A DRUG INTERVAL OF 1 DAY
     Route: 048
  8. ORENCIA [Suspect]
     Active Substance: ABATACEPT
     Indication: RHEUMATOID ARTHRITIS
     Dosage: 500 MG WITH A DRUG INTERVAL OF 4 WEEKS
     Route: 042
     Dates: start: 2014
  9. ALPRAZOLAM. [Suspect]
     Active Substance: ALPRAZOLAM
     Indication: ANXIETY
     Dosage: DRUG STRUCTURE 0.25 MG WITH A DRUG INTERVAL OF 1 DAY
     Route: 048
  10. RISPERDAL [Suspect]
     Active Substance: RISPERIDONE
     Indication: PRODUCT USED FOR UNKNOWN INDICATION
     Dosage: DRUG STRUCTURE 0.25 MG WITH A DRUG INTERVAL OF 1 DAY
     Route: 048
     Dates: end: 20160705
  11. OXYNORM [Suspect]
     Active Substance: OXYCODONE HYDROCHLORIDE
     Indication: PAIN
     Dosage: DRUG STRUCTURE 5 MG WITH A DRUG INTERVAL OF 1 DAY
     Route: 048
  12. CORTANCYL [Suspect]
     Active Substance: PREDNISONE
     Indication: PRODUCT USED FOR UNKNOWN INDICATION
     Dosage: DRUG STRUCTURE 9 MG WITH A DRUG INTERVAL OF 1 DAY
     Route: 048
  13. PANTOPRAZOLE [Suspect]
     Active Substance: PANTOPRAZOLE
     Indication: GASTROOESOPHAGEAL REFLUX DISEASE
     Dosage: DRUG STRUCTURE 20 MG WITH A DRUG INTERVAL OF 1 DAY
     Route: 065
  14. MALOCIDE                           /00112501/ [Suspect]
     Active Substance: PYRIMETHAMINE
     Indication: PRODUCT USED FOR UNKNOWN INDICATION
     Dosage: DRUG STRUCTURE 50 MG WITH A DRUG INTERVAL OF 1 DAY
     Route: 048
     Dates: end: 20160705
  15. ACIDE FOLIQUE [Suspect]
     Active Substance: FOLIC ACID
     Indication: FOLATE DEFICIENCY
     Dosage: DRUG STRUCTURE 10 MG WITH A DRUG INTERVAL OF 1 WEEK
     Route: 048
  16. SERTRALINE [Suspect]
     Active Substance: SERTRALINE HYDROCHLORIDE
     Indication: DEPRESSION
     Dosage: DRUG STRUCTURE 5 MG WITH A DRUG INTERVAL OF 1 DAY
     Route: 048
  17. LYRICA [Suspect]
     Active Substance: PREGABALIN
     Indication: ANXIETY
     Dosage: DRUG STRUCTURE 150 MG WITH A DRUG INTERVAL OF 1 DAY
     Route: 048
     Dates: end: 20160705
  18. OXYCONTIN [Suspect]
     Active Substance: OXYCODONE HYDROCHLORIDE
     Indication: PAIN
     Dosage: 2 DF= DRUG STRUCTURE ?2 T? WITH A DRUG INTERVAL OF 1 DAY
     Route: 048

REACTIONS (2)
  - Bone marrow failure [Recovered/Resolved]
  - Pancytopenia [Recovered/Resolved]

NARRATIVE: CASE EVENT DATE: 201607
